FAERS Safety Report 25311086 (Version 1)
Quarter: 2025Q2

REPORT INFORMATION
  Report Type: Spontaneous
  Country: US (occurrence: US)
  Receive Date: 20250514
  Receipt Date: 20250514
  Transmission Date: 20250717
  Serious: No
  Sender: MERCK SHARP & DOHME LLC
  Company Number: US-009507513-2274442

PATIENT
  Age: 1 Year
  Sex: Female

DRUGS (5)
  1. PROQUAD [Suspect]
     Active Substance: MEASLES VIRUS STRAIN ENDERS^ ATTENUATED EDMONSTON LIVE ANTIGEN\MUMPS VIRUS STRAIN B LEVEL JERYL LYNN
     Indication: Prophylaxis
     Route: 065
     Dates: start: 20250407, end: 20250407
  2. STERILE DILUENT (WATER) [Suspect]
     Active Substance: WATER
     Indication: Prophylaxis
     Route: 065
     Dates: start: 20250407, end: 20250407
  3. Hep A [Concomitant]
     Indication: Prophylaxis
     Dates: start: 20250407, end: 20250407
  4. HAEMOPHILUS B CONJUGATE VACCINE NOS [Concomitant]
     Active Substance: HAEMOPHILUS B CONJUGATE VACCINE
     Indication: Prophylaxis
     Dates: start: 20250407, end: 20250407
  5. PCV 20 [Concomitant]
     Indication: Prophylaxis
     Dates: start: 20250407, end: 20250407

REACTIONS (2)
  - Accidental underdose [Unknown]
  - No adverse event [Unknown]

NARRATIVE: CASE EVENT DATE: 20250407
